FAERS Safety Report 8394637-5 (Version None)
Quarter: 2012Q2

REPORT INFORMATION
  Report Type: 
  Country: None (occurrence: None)
  Receive Date: 20120529
  Receipt Date: 20120529
  Transmission Date: 20120825
  Serious: No
  Sender: FDA-Public Use
  Company Number: None

PATIENT
  Age: 56 Year
  Sex: Male
  Weight: 63.5036 kg

DRUGS (2)
  1. FLUOXETINE [Suspect]
     Indication: DEPRESSION
     Dosage: 40 MG 1/DAY PO
     Route: 048
     Dates: start: 20110620, end: 20120301
  2. RISPERIDONE [Suspect]
     Indication: DEPRESSION
     Dosage: 2 MG 1/DAY PO
     Route: 048
     Dates: start: 20110620, end: 20120301

REACTIONS (1)
  - AMNESIA [None]
